FAERS Safety Report 25839878 (Version 2)
Quarter: 2025Q3

REPORT INFORMATION
  Report Type: Spontaneous
  Country: US (occurrence: US)
  Receive Date: 20250924
  Receipt Date: 20250926
  Transmission Date: 20251021
  Serious: Yes (Death)
  Sender: DAIICHI
  Company Number: US-DAIICHI SANKYO, INC.-DS-2025-166112-USAA

PATIENT
  Age: 14 Year
  Sex: Female

DRUGS (1)
  1. VANFLYTA [Suspect]
     Active Substance: QUIZARTINIB DIHYDROCHLORIDE
     Indication: Acute myeloid leukaemia
     Dosage: 17.7 MG, QD (FOR 28 DAYS)
     Route: 048
     Dates: end: 20250922

REACTIONS (1)
  - Death [Fatal]

NARRATIVE: CASE EVENT DATE: 20250901
